FAERS Safety Report 24762143 (Version 1)
Quarter: 2024Q4

REPORT INFORMATION
  Report Type: Spontaneous
  Country: US (occurrence: US)
  Receive Date: 20241221
  Receipt Date: 20241221
  Transmission Date: 20250115
  Serious: Yes (Other)
  Sender: CELLTRION
  Company Number: US-CELLTRION INC.-2023US024106

PATIENT

DRUGS (3)
  1. TRUXIMA [Suspect]
     Active Substance: RITUXIMAB-ABBS
     Indication: Pemphigoid
     Dosage: 10 MILLIGRAM PER MILLILITRE
     Dates: start: 20231026
  2. TRUXIMA [Suspect]
     Active Substance: RITUXIMAB-ABBS
     Dosage: 10 MILLIGRAM PER MILLILITRE
     Dates: start: 20231108
  3. PREDNISONE [Concomitant]
     Active Substance: PREDNISONE
     Dosage: 2.5 MILLIGRAM

REACTIONS (4)
  - SARS-CoV-2 test positive [Recovered/Resolved]
  - Microscopic polyangiitis [Unknown]
  - Pyrexia [Unknown]
  - Intentional product use issue [Unknown]
